FAERS Safety Report 4778604-6 (Version None)
Quarter: 2005Q3

REPORT INFORMATION
  Report Type: 
  Country: None (occurrence: None)
  Receive Date: 20050922
  Receipt Date: 20050909
  Transmission Date: 20060218
  Serious: Yes (Hospitalization, Other)
  Sender: FDA-Public Use
  Company Number: 2005077425

PATIENT
  Age: 68 Year
  Sex: Female
  Weight: 102 kg

DRUGS (3)
  1. SOMAVERT [Suspect]
     Indication: ACROMEGALY
     Dosage: 10 MG (10 MG, DAILY); 15 MG
     Dates: start: 20040101
  2. SOMAVERT [Suspect]
     Indication: ACROMEGALY
     Dosage: 10 MG (10 MG, DAILY); 15 MG
     Dates: start: 20050401
  3. INSULIN [Suspect]
     Indication: ILL-DEFINED DISORDER
     Dosage: 80 I.U. (80 I.U.) SUBCUTANEOUS
     Route: 058

REACTIONS (5)
  - BLOOD INSULIN DECREASED [None]
  - HYPERGLYCAEMIA [None]
  - HYPOGLYCAEMIC COMA [None]
  - LABORATORY TEST ABNORMAL [None]
  - OVERDOSE [None]
